FAERS Safety Report 24981677 (Version 1)
Quarter: 2025Q1

REPORT INFORMATION
  Report Type: Spontaneous
  Country: US (occurrence: US)
  Receive Date: 20250218
  Receipt Date: 20250218
  Transmission Date: 20250409
  Serious: No
  Sender: INSUD PHARMA
  Company Number: US-INSUD PHARMA-2502US00785

PATIENT

DRUGS (2)
  1. SLYND [Suspect]
     Active Substance: DROSPIRENONE
     Indication: Product used for unknown indication
     Route: 048
     Dates: start: 20250131
  2. SLYND [Suspect]
     Active Substance: DROSPIRENONE
     Route: 048
     Dates: end: 20250123

REACTIONS (3)
  - Mood swings [Not Recovered/Not Resolved]
  - Breast tenderness [Not Recovered/Not Resolved]
  - Product administration interrupted [Unknown]

NARRATIVE: CASE EVENT DATE: 20250101
